FAERS Safety Report 19440158 (Version 1)
Quarter: 2021Q2

REPORT INFORMATION
  Report Type: Spontaneous
  Country: US (occurrence: US)
  Receive Date: 20210620
  Receipt Date: 20210620
  Transmission Date: 20210717
  Serious: No
  Sender: FDA-Public Use
  Company Number: US-ASTRAZENECA-2021A477914

PATIENT
  Age: 871 Month
  Sex: Male
  Weight: 80.7 kg

DRUGS (3)
  1. ASPIRIN. [Concomitant]
     Active Substance: ASPIRIN
     Indication: BIOPSY HEART
     Dosage: UNKNOWN
     Route: 065
  2. BYDUREON BCISE [Suspect]
     Active Substance: EXENATIDE
     Dosage: THIRD DOSE UNKNOWN
     Route: 065
     Dates: start: 202102
  3. BYDUREON BCISE [Suspect]
     Active Substance: EXENATIDE
     Dosage: UNKNOWN
     Route: 065
     Dates: start: 2021

REACTIONS (9)
  - Illness [Recovered/Resolved]
  - Vomiting [Recovered/Resolved]
  - Incorrect dose administered by device [Unknown]
  - Nausea [Recovered/Resolved]
  - Injection site haemorrhage [Recovered/Resolved]
  - Injection site haematoma [Unknown]
  - Drug dose omission by device [Unknown]
  - Incorrect route of product administration [Recovered/Resolved]
  - Device leakage [Unknown]

NARRATIVE: CASE EVENT DATE: 202102
